FAERS Safety Report 8829530 (Version 1)
Quarter: 2012Q4

REPORT INFORMATION
  Report Type: 
  Country: US (occurrence: US)
  Receive Date: 20121008
  Receipt Date: 20121008
  Transmission Date: 20130627
  Serious: Yes (Other)
  Sender: FDA-Public Use
  Company Number: US-ROCHE-1072462

PATIENT
  Sex: Female
  Weight: 68.1 kg

DRUGS (3)
  1. ACCUTANE [Suspect]
     Indication: ACNE
     Route: 065
     Dates: start: 20020219, end: 20020819
  2. AMNESTEEM [Suspect]
     Indication: ACNE
     Route: 065
  3. BIRTH CONTROL PILL (UNK INGREDIENTS) [Concomitant]

REACTIONS (5)
  - Inflammatory bowel disease [Unknown]
  - Depression [Unknown]
  - Colitis ulcerative [Unknown]
  - Crohn^s disease [Unknown]
  - Irritable bowel syndrome [Unknown]
